FAERS Safety Report 14377753 (Version 1)
Quarter: 2018Q1

REPORT INFORMATION
  Report Type: Spontaneous
  Country: SE (occurrence: SE)
  Receive Date: 20180111
  Receipt Date: 20180111
  Transmission Date: 20180509
  Serious: Yes (Other)
  Sender: FDA-Public Use
  Company Number: SE-009507513-1801SWE001023

PATIENT
  Age: 90 Year
  Sex: Female

DRUGS (5)
  1. INVANZ [Suspect]
     Active Substance: ERTAPENEM SODIUM
     Indication: UROSEPSIS
     Dosage: 1G 1X1
     Route: 042
     Dates: start: 20171012, end: 20171020
  2. LETROZOLE. [Concomitant]
     Active Substance: LETROZOLE
     Dosage: 1X1
  3. METOPROLOL TARTRATE. [Concomitant]
     Active Substance: METOPROLOL TARTRATE
     Dosage: 1X2
  4. FURIX [Concomitant]
     Active Substance: FUROSEMIDE
     Dosage: 1X2
  5. ELIQUIS [Concomitant]
     Active Substance: APIXABAN
     Dosage: 1X2

REACTIONS (2)
  - Hallucination [Unknown]
  - Confusional state [Unknown]

NARRATIVE: CASE EVENT DATE: 20171017
